FAERS Safety Report 6812151-2 (Version None)
Quarter: 2010Q3

REPORT INFORMATION
  Report Type: 
  Country: None (occurrence: None)
  Receive Date: 20100701
  Receipt Date: 20100623
  Transmission Date: 20110219
  Serious: Yes (Hospitalization)
  Sender: FDA-Public Use
  Company Number: DE-ABBOTT-10P-062-0653175-00

PATIENT
  Age: 64 Year
  Sex: Male

DRUGS (6)
  1. ERGENYL TABLETS [Suspect]
     Indication: PRODUCT USED FOR UNKNOWN INDICATION
     Route: 048
     Dates: start: 20030101, end: 20090827
  2. ERGENYL TABLETS [Suspect]
     Route: 048
     Dates: start: 20090828, end: 20091120
  3. ZUCLOPENTHIXOL DECANOATE [Suspect]
     Indication: PRODUCT USED FOR UNKNOWN INDICATION
     Route: 030
     Dates: start: 20091021, end: 20091104
  4. LORAZEPAM [Concomitant]
     Indication: PRODUCT USED FOR UNKNOWN INDICATION
     Dates: start: 20091021
  5. HALDOL [Concomitant]
     Indication: PRODUCT USED FOR UNKNOWN INDICATION
     Dates: start: 20091021
  6. PROMETHAZINE [Concomitant]
     Indication: PRODUCT USED FOR UNKNOWN INDICATION
     Dates: start: 20091021, end: 20091111

REACTIONS (4)
  - BLOOD INSULIN INCREASED [None]
  - HYPOGLYCAEMIA [None]
  - HYPOTHERMIA [None]
  - SOMNOLENCE [None]
